FAERS Safety Report 18751503 (Version 3)
Quarter: 2021Q1

REPORT INFORMATION
  Report Type: Spontaneous
  Country: US (occurrence: US)
  Receive Date: 20210118
  Receipt Date: 20210319
  Transmission Date: 20210419
  Serious: Yes (Hospitalization)
  Sender: FDA-Public Use
  Company Number: US-BIOVITRUM-2021US0508

PATIENT
  Sex: Male

DRUGS (2)
  1. SYNAGIS [Suspect]
     Active Substance: PALIVIZUMAB
     Indication: DOUBLE OUTLET RIGHT VENTRICLE
     Dosage: 15 MG/ML (100MG/ML, 50MG/0.5ML)
     Route: 030
     Dates: start: 20201118
  2. SYNAGIS [Suspect]
     Active Substance: PALIVIZUMAB
     Indication: VENTRICULAR SEPTAL DEFECT

REACTIONS (1)
  - Unevaluable event [Unknown]
